FAERS Safety Report 17489115 (Version 1)
Quarter: 2020Q1

REPORT INFORMATION
  Report Type: Spontaneous
  Country: DE (occurrence: DE)
  Receive Date: 20200303
  Receipt Date: 20200303
  Transmission Date: 20200409
  Serious: Yes (Other)
  Sender: FDA-Public Use
  Company Number: DE-MYLANLABS-2020M1022566

PATIENT
  Sex: Male

DRUGS (10)
  1. AMLODIPINE BESILATE [Concomitant]
     Active Substance: AMLODIPINE BESYLATE
     Dosage: UNK
     Dates: start: 20181025
  2. THYRONAJOD [Concomitant]
     Active Substance: LEVOTHYROXINE SODIUM\POTASSIUM IODIDE
     Indication: PRODUCT USED FOR UNKNOWN INDICATION
     Dosage: UNK
  3. UROREC [Concomitant]
     Active Substance: SILODOSIN
     Dosage: UNK
     Dates: start: 20190402
  4. IBUFLAM                            /00109201/ [Concomitant]
     Active Substance: IBUPROFEN
     Dosage: UNK
     Dates: start: 20190713
  5. UROREC [Concomitant]
     Active Substance: SILODOSIN
     Dosage: UNK
     Dates: start: 20181211
  6. SIMVA [Concomitant]
     Active Substance: SIMVASTATIN
     Dosage: UNK
     Dates: start: 20190718
  7. VALSARTAN DURA 320 MG FILMTABLETTEN [Suspect]
     Active Substance: VALSARTAN
     Indication: PRODUCT USED FOR UNKNOWN INDICATION
     Dosage: 320 MILLIGRAM, QD
     Dates: start: 20181025
  8. VALSARTAN DURA 320 MG FILMTABLETTEN [Suspect]
     Active Substance: VALSARTAN
     Dosage: 320 MILLIGRAM, QD
     Dates: start: 20190404
  9. VALSARTAN DURA 320 MG FILMTABLETTEN [Suspect]
     Active Substance: VALSARTAN
     Dosage: 320 MILLIGRAM, QD
     Dates: start: 20190718
  10. AMOXI                              /00249601/ [Concomitant]
     Active Substance: AMOXICILLIN
     Dosage: UNK
     Dates: start: 20190713

REACTIONS (3)
  - Fear of disease [Unknown]
  - Quality of life decreased [Unknown]
  - Mental impairment [Unknown]
